FAERS Safety Report 9337618 (Version 2)
Quarter: 2013Q2

REPORT INFORMATION
  Report Type: Spontaneous
  Country: AR (occurrence: AR)
  Receive Date: 20130607
  Receipt Date: 20130610
  Transmission Date: 20140414
  Serious: Yes (Other)
  Sender: FDA-Public Use
  Company Number: AR-JNJFOC-20130500166

PATIENT
  Age: 43 Year
  Sex: Female

DRUGS (5)
  1. RISPERDAL [Suspect]
     Indication: PRODUCT USED FOR UNKNOWN INDICATION
     Dosage: 2 DROPS IN THE MID-DAY AND 5 DROPS AT NIGHT
     Route: 048
     Dates: start: 2013
  2. RISPERDAL [Suspect]
     Indication: PRODUCT USED FOR UNKNOWN INDICATION
     Dosage: 2 DROPS IN THE DAY AND 3 DROPS AT NIGHT
     Route: 048
     Dates: start: 2012
  3. RISPERDAL [Suspect]
     Indication: PRODUCT USED FOR UNKNOWN INDICATION
     Dosage: 3 UNITS
     Route: 048
     Dates: start: 2013
  4. RISPERDAL [Suspect]
     Indication: PRODUCT USED FOR UNKNOWN INDICATION
     Dosage: 2 DROPS IN THE DAY AND 4 DROPS AT NIGHT
     Route: 048
     Dates: start: 2012, end: 2013
  5. BROMOCRIPTINE [Suspect]
     Indication: CRYING
     Dosage: 1 CAPSULE AT MID DAY AND 1 AT NIGHT
     Route: 048

REACTIONS (6)
  - Crying [Not Recovered/Not Resolved]
  - Insomnia [Not Recovered/Not Resolved]
  - Drug effect decreased [Unknown]
  - Condition aggravated [Not Recovered/Not Resolved]
  - Weight decreased [Not Recovered/Not Resolved]
  - Incorrect dose administered [Unknown]
